FAERS Safety Report 6628511-9 (Version None)
Quarter: 2010Q1

REPORT INFORMATION
  Report Type: 
  Country: None (occurrence: None)
  Receive Date: 20100225
  Receipt Date: 20090917
  Transmission Date: 20100710
  Serious: Yes (Other)
  Sender: FDA-Public Use
  Company Number: 657272

PATIENT
  Age: 16 Year
  Sex: Male
  Weight: 69.9 kg

DRUGS (3)
  1. ACCUTANE [Suspect]
     Indication: ACNE
     Dosage: 60 MG DAILY
     Dates: start: 20021007, end: 20030224
  2. AMNESTEEM [Suspect]
     Indication: ACNE
     Dates: start: 20030110, end: 20030315
  3. IBUPROFEN [Concomitant]

REACTIONS (6)
  - CHAPPED LIPS [None]
  - CROHN'S DISEASE [None]
  - DERMATITIS [None]
  - INFLAMMATORY BOWEL DISEASE [None]
  - WHITE BLOOD CELL COUNT DECREASED [None]
  - XEROSIS [None]
